FAERS Safety Report 18149863 (Version 10)
Quarter: 2022Q4

REPORT INFORMATION
  Report Type: Report from Study
  Country: US (occurrence: US)
  Receive Date: 20200814
  Receipt Date: 20221229
  Transmission Date: 20230113
  Serious: Yes (Death, Hospitalization, Other)
  Sender: FDA-Public Use
  Company Number: US-ACADIA PHARMACEUTICALS INC.-ACA-2020-PIM-002440

PATIENT
  Age: 71 Year
  Sex: Male

DRUGS (13)
  1. NUPLAZID [Suspect]
     Active Substance: PIMAVANSERIN TARTRATE
     Indication: Parkinson^s disease
     Dosage: 34 MILLIGRAM, QD
     Route: 048
     Dates: start: 20200710, end: 20221128
  2. ASPIRIN [Concomitant]
     Active Substance: ASPIRIN
     Dosage: 81 MILLIGRAM, 1 TABLET EVERYDAY
     Route: 048
  3. ZYLOPRIM [Concomitant]
     Active Substance: ALLOPURINOL
     Dosage: 100 MILLIGRAM, QD
     Route: 048
  4. LIPITOR [Concomitant]
     Active Substance: ATORVASTATIN CALCIUM
     Dosage: 10 MILLIGRAM, QD
     Route: 048
  5. RYTARY [Concomitant]
     Active Substance: CARBIDOPA\LEVODOPA
     Dosage: 61.25-245 MG, 2 TABLETS EVERY 2.5 HOURS
  6. SINEMET [Concomitant]
     Active Substance: CARBIDOPA\LEVODOPA
     Dosage: 25-100 MG, 2 TABLET EVERY 2 HOURS 7 TIMES A DAY
  7. VITAMIN B12 [Concomitant]
     Active Substance: CYANOCOBALAMIN
     Dosage: 1000 MCG/ML, INJECT 1000 MCG UNDER THE SKIN
  8. VITAMIN B12 [Concomitant]
     Active Substance: CYANOCOBALAMIN
     Dosage: 1000 MCG/ML, INJECT 1000 MCG UNDER THE SKIN EVERY 30 DAYS
  9. ROBINUL [Concomitant]
     Active Substance: GLYCOPYRROLATE
     Indication: Secretion discharge
     Dosage: 1 MILLIGRAM, TAKE 1 TABLET EVERY TWO TIMES AS NEEDED
     Route: 048
  10. PRINIVIL [Concomitant]
     Active Substance: LISINOPRIL
     Dosage: 20 MILLIGRAM, QD
     Route: 048
  11. XADAGO [Concomitant]
     Active Substance: SAFINAMIDE MESYLATE
     Dosage: 100 MILLIGRAM, QD
     Route: 048
  12. SALICYLIC ACID [Concomitant]
     Active Substance: SALICYLIC ACID
     Dosage: 6 %, TWO TIMES A DAY
     Route: 061
  13. SIMETHICONE (DIMETHICONE) [Concomitant]
     Active Substance: DIMETHICONE
     Indication: Flatulence
     Dosage: 80 MILLIGRAM, 1 TABLET EVERY 6 HOURS AS NEEDED FOR UPTO 10 DAYS

REACTIONS (26)
  - Myocardial infarction [Recovered/Resolved]
  - Syncope [Unknown]
  - Ear infection [Unknown]
  - Drooling [Unknown]
  - Abdominal pain [Unknown]
  - Diarrhoea [Unknown]
  - Haemorrhoids [Unknown]
  - Treatment noncompliance [Unknown]
  - Dysphagia [Unknown]
  - Dry throat [Unknown]
  - Rib fracture [Not Recovered/Not Resolved]
  - Parkinson^s disease [Not Recovered/Not Resolved]
  - Dysphagia [Not Recovered/Not Resolved]
  - Productive cough [Unknown]
  - Chills [Unknown]
  - Visual impairment [Unknown]
  - Fall [Not Recovered/Not Resolved]
  - Hallucination [Not Recovered/Not Resolved]
  - Hallucination [Unknown]
  - Hallucination [Not Recovered/Not Resolved]
  - Gait disturbance [Not Recovered/Not Resolved]
  - Hallucination [Not Recovered/Not Resolved]
  - Hallucination [Unknown]
  - Confusional state [Unknown]
  - Hallucination [Not Recovered/Not Resolved]
  - Hallucination [Not Recovered/Not Resolved]

NARRATIVE: CASE EVENT DATE: 20210217
